FAERS Safety Report 10793838 (Version 1)
Quarter: 2015Q1

REPORT INFORMATION
  Report Type: Spontaneous
  Country: GB (occurrence: GB)
  Receive Date: 20150213
  Receipt Date: 20150213
  Transmission Date: 20150721
  Serious: Yes (Hospitalization, Other)
  Sender: FDA-Public Use
  Company Number: 2015SP000437

PATIENT
  Age: 21 Year
  Sex: Female
  Weight: 57 kg

DRUGS (5)
  1. QUETIAPINE [Concomitant]
     Active Substance: QUETIAPINE
  2. DULOXETINE [Concomitant]
     Active Substance: DULOXETINE
  3. LATUDA [Suspect]
     Active Substance: LURASIDONE HYDROCHLORIDE
     Indication: BIPOLAR DISORDER
     Route: 048
     Dates: start: 20150122
  4. PREGABALIN. [Concomitant]
     Active Substance: PREGABALIN
  5. LITHIUM CARBONATE. [Concomitant]
     Active Substance: LITHIUM CARBONATE

REACTIONS (3)
  - Paranoia [Not Recovered/Not Resolved]
  - Muscle twitching [Unknown]
  - Vision blurred [Unknown]

NARRATIVE: CASE EVENT DATE: 20150122
